FAERS Safety Report 4827274-7 (Version None)
Quarter: 2005Q4

REPORT INFORMATION
  Report Type: 
  Country: None (occurrence: None)
  Receive Date: 20051114
  Receipt Date: 20051031
  Transmission Date: 20060501
  Serious: Yes (Hospitalization)
  Sender: FDA-Public Use
  Company Number: 2005AC01728

PATIENT
  Age: 17908 Day
  Sex: Female

DRUGS (6)
  1. PLENDIL [Suspect]
     Route: 048
     Dates: start: 20050620, end: 20051018
  2. PROGRAF [Interacting]
     Indication: PROPHYLAXIS AGAINST TRANSPLANT REJECTION
     Route: 048
     Dates: start: 20040115
  3. CALCI CHEW [Concomitant]
     Route: 048
     Dates: start: 20030224, end: 20051018
  4. PREDNISOLONUM [Concomitant]
     Route: 048
     Dates: start: 20050915
  5. RENAGEL [Concomitant]
     Route: 048
     Dates: start: 20010516, end: 20051018
  6. CALCITRIOL [Concomitant]

REACTIONS (3)
  - DRUG INTERACTION [None]
  - HYPERCALCAEMIA [None]
  - HYPOCALCAEMIA [None]
